FAERS Safety Report 22614966 (Version 2)
Quarter: 2023Q2

REPORT INFORMATION
  Report Type: Spontaneous
  Country: US (occurrence: US)
  Receive Date: 20230619
  Receipt Date: 20230623
  Transmission Date: 20230721
  Serious: Yes (Other)
  Sender: FDA-Public Use
  Company Number: US-BAYER-2023A084415

PATIENT
  Age: 37 Year
  Sex: Male

DRUGS (1)
  1. JIVI [Suspect]
     Active Substance: DAMOCTOCOG ALFA PEGOL
     Dosage: 6000 UNITS (+/-10%) IV
     Route: 042

REACTIONS (2)
  - Arthralgia [None]
  - Spontaneous haemorrhage [None]

NARRATIVE: CASE EVENT DATE: 20230501
